FAERS Safety Report 24699033 (Version 2)
Quarter: 2025Q3

REPORT INFORMATION
  Report Type: Spontaneous
  Country: CN (occurrence: CA)
  Receive Date: 20241205
  Receipt Date: 20250809
  Transmission Date: 20251020
  Serious: Yes (Hospitalization, Other)
  Sender: ALEXION PHARMACEUTICALS
  Company Number: CN-ASTRAZENECA-202411CHN024948CN

PATIENT
  Age: 52 Year
  Sex: Male
  Weight: 61 kg

DRUGS (2)
  1. TAGRISSO [Suspect]
     Active Substance: OSIMERTINIB
     Indication: Treatment noncompliance
     Dates: start: 20240514, end: 20241114
  2. GEFITINIB [Suspect]
     Active Substance: GEFITINIB

REACTIONS (1)
  - Intestinal ulcer perforation [Recovering/Resolving]

NARRATIVE: CASE EVENT DATE: 20241115
